FAERS Safety Report 7825871-8 (Version None)
Quarter: 2011Q4

REPORT INFORMATION
  Report Type: 
  Country: None (occurrence: None)
  Receive Date: 20111019
  Receipt Date: 20111005
  Transmission Date: 20120403
  Serious: Yes (Other)
  Sender: FDA-Public Use
  Company Number: US-ROCHE-1003118

PATIENT
  Sex: Female

DRUGS (1)
  1. ZELBORAF [Suspect]
     Indication: PRODUCT USED FOR UNKNOWN INDICATION

REACTIONS (7)
  - FATIGUE [None]
  - STOMATITIS [None]
  - LIP DISORDER [None]
  - ARTHRALGIA [None]
  - METASTASES TO CENTRAL NERVOUS SYSTEM [None]
  - VISION BLURRED [None]
  - NAUSEA [None]
